FAERS Safety Report 7531228-X (Version None)
Quarter: 2011Q2

REPORT INFORMATION
  Report Type: 
  Country: None (occurrence: None)
  Receive Date: 20110531
  Receipt Date: 20110517
  Transmission Date: 20111010
  Serious: Yes (Death, Life-Threatening)
  Sender: FDA-Public Use
  Company Number: WAES 1103GBR00127

PATIENT
  Age: 65 Year
  Sex: Male

DRUGS (9)
  1. PIPERACILLIN SODIUM [Concomitant]
  2. DALTEPARIN SODIUM [Suspect]
     Indication: LUNG NEOPLASM MALIGNANT
     Dates: start: 20101220, end: 20110225
  3. ONDANSETRON [Suspect]
     Dosage: 8 MG PO
     Route: 048
  4. APREPITANT [Suspect]
     Dosage: PO
     Route: 048
     Dates: start: 20110225, end: 20110225
  5. PEMETREXED [Suspect]
     Dosage: IV
     Route: 042
     Dates: start: 20101221, end: 20110225
  6. CISPLATIN [Suspect]
     Dosage: IV
     Route: 042
     Dates: start: 20101221, end: 20110225
  7. DEXAMETHASONE [Suspect]
     Dosage: 4 MG PO
     Route: 048
     Dates: end: 20110225
  8. MORPHINE SULFATE [Suspect]
     Dosage: 30 MG PO
     Route: 048
  9. ACETAMINOPHEN [Concomitant]

REACTIONS (6)
  - LARGE INTESTINE PERFORATION [None]
  - LUNG CANCER METASTATIC [None]
  - CONSTIPATION [None]
  - NAUSEA [None]
  - ABDOMINAL PAIN [None]
  - PERITONITIS [None]
